FAERS Safety Report 9873902 (Version 2)
Quarter: 2014Q1

REPORT INFORMATION
  Report Type: Spontaneous
  Country: US (occurrence: US)
  Receive Date: 20140206
  Receipt Date: 20140206
  Transmission Date: 20141002
  Serious: No
  Sender: FDA-Public Use
  Company Number: US-ACORDA-ACO_31110_2012

PATIENT
  Sex: Male

DRUGS (2)
  1. AMPYRA [Suspect]
     Indication: PRODUCT USED FOR UNKNOWN INDICATION
     Dosage: 10 MG, BID
     Dates: start: 201007
  2. AMPYRA [Suspect]
     Dosage: 10 MG, QD
     Dates: end: 2013

REACTIONS (3)
  - Anxiety [Unknown]
  - Disturbance in attention [Unknown]
  - Insomnia [Recovered/Resolved]
